FAERS Safety Report 12795213 (Version 1)
Quarter: 2016Q3

REPORT INFORMATION
  Report Type: Spontaneous
  Country: US (occurrence: US)
  Receive Date: 20160929
  Receipt Date: 20160929
  Transmission Date: 20161109
  Serious: Yes (Hospitalization)
  Sender: FDA-Public Use
  Company Number: US-PFIZER INC-2016443830

PATIENT
  Age: 47 Year
  Sex: Male
  Weight: 84 kg

DRUGS (2)
  1. FUROSEMIDE. [Suspect]
     Active Substance: FUROSEMIDE
     Dosage: 40 MG, DAILY
  2. CARVEDILOL. [Suspect]
     Active Substance: CARVEDILOL
     Dosage: 3.125 BID

REACTIONS (2)
  - Oedema [Unknown]
  - Cardiac failure congestive [Unknown]

NARRATIVE: CASE EVENT DATE: 20160416
